FAERS Safety Report 11433389 (Version 1)
Quarter: 2015Q3

REPORT INFORMATION
  Report Type: Spontaneous
  Country: JP (occurrence: JP)
  Receive Date: 20150830
  Receipt Date: 20150830
  Transmission Date: 20151125
  Serious: Yes (Hospitalization, Other)
  Sender: FDA-Public Use
  Company Number: JP-STRIDES ARCOLAB LIMITED-2015SP001114

PATIENT

DRUGS (13)
  1. MYCOPHENOLATE MOFETIL. [Interacting]
     Active Substance: MYCOPHENOLATE MOFETIL
     Indication: IMMUNOSUPPRESSANT DRUG THERAPY
     Dosage: 1500 MG, QD
     Route: 065
  2. TACROLIMUS. [Concomitant]
     Active Substance: TACROLIMUS
     Dosage: 1 MG, QD
  3. RIBAVARIN [Interacting]
     Active Substance: RIBAVIRIN
     Dosage: 800 MG, QD
  4. PEGINTERFERON ALFA-2A [Suspect]
     Active Substance: PEGINTERFERON ALFA-2A
     Dosage: 45 MG, ONCE A WEEK
  5. RIBAVARIN [Interacting]
     Active Substance: RIBAVIRIN
     Dosage: 400 MG, QD
  6. MYCOPHENOLATE MOFETIL. [Interacting]
     Active Substance: MYCOPHENOLATE MOFETIL
     Dosage: 500 MG, QD
  7. MYCOPHENOLATE MOFETIL. [Interacting]
     Active Substance: MYCOPHENOLATE MOFETIL
     Dosage: 1000 MG, QD ON DAY 39
  8. PEGINTERFERON ALFA-2A [Suspect]
     Active Substance: PEGINTERFERON ALFA-2A
     Dosage: 90 MG, ONCE A WEEK
  9. RIBAVARIN [Interacting]
     Active Substance: RIBAVIRIN
     Dosage: 400 MG, QD ON DAY 27
  10. TACROLIMUS. [Concomitant]
     Active Substance: TACROLIMUS
     Indication: IMMUNOSUPPRESSANT DRUG THERAPY
     Dosage: 1.8 MG, QD
  11. PEGINTERFERON ALFA-2A [Suspect]
     Active Substance: PEGINTERFERON ALFA-2A
     Indication: HEPATITIS C
     Dosage: 180 MG, ONCE A WEEK
     Route: 065
  12. SIMEPREVIR [Suspect]
     Active Substance: SIMEPREVIR
     Indication: HEPATITIS C
     Dosage: 100 MG, QD
  13. RIBAVARIN [Interacting]
     Active Substance: RIBAVIRIN
     Indication: HEPATITIS C
     Dosage: 800 MG, QD

REACTIONS (3)
  - Drug interaction [Recovered/Resolved]
  - Haemolytic anaemia [Recovered/Resolved]
  - Bone marrow failure [Recovered/Resolved]
